FAERS Safety Report 5759916-6 (Version None)
Quarter: 2008Q2

REPORT INFORMATION
  Report Type: 
  Country: None (occurrence: None)
  Receive Date: 20080605
  Receipt Date: 20080602
  Transmission Date: 20081010
  Serious: Yes (Hospitalization)
  Sender: FDA-Public Use
  Company Number: FR-BRISTOL-MYERS SQUIBB COMPANY-14213508

PATIENT
  Age: 79 Year
  Sex: Male
  Weight: 62 kg

DRUGS (20)
  1. EFFERALGAN EFFER TABS 1 G [Suspect]
     Dates: start: 20071012, end: 20071014
  2. AMOXICILLIN [Suspect]
     Dates: end: 20071014
  3. CLAVULANATE POTASSIUM [Suspect]
     Dates: start: 20071012, end: 20071014
  4. PREVISCAN [Suspect]
     Dates: end: 20071014
  5. PNEUMOREL [Suspect]
     Dosage: PNEUMOREL 0.2%
     Dates: start: 20071012, end: 20071014
  6. AMLODIPINE [Concomitant]
  7. CLONIDINE [Concomitant]
  8. NEXIUM [Concomitant]
  9. NOLVADEX [Concomitant]
  10. KAYEXALATE [Concomitant]
  11. BURINEX [Concomitant]
  12. CARDENSIEL [Concomitant]
  13. RENAGEL [Concomitant]
  14. NITRODERM [Concomitant]
  15. ARANESP [Concomitant]
  16. TAMOXIFEN CITRATE [Concomitant]
  17. UN-ALFA [Concomitant]
  18. UVEDOSE [Concomitant]
  19. AUGMENTIN '125' [Concomitant]
     Dosage: DOSAGE FORM = NO UNIT
     Dates: start: 20071012
  20. DI-ANTALVIC [Concomitant]
     Dates: start: 20071012

REACTIONS (4)
  - ACUTE RESPIRATORY FAILURE [None]
  - ANAEMIA [None]
  - INTERNATIONAL NORMALISED RATIO INCREASED [None]
  - RECTAL HAEMORRHAGE [None]
